FAERS Safety Report 4370402-0 (Version None)
Quarter: 2004Q2

REPORT INFORMATION
  Report Type: 
  Country: None (occurrence: None)
  Receive Date: 20040603
  Receipt Date: 20040301
  Transmission Date: 20050107
  Serious: No
  Sender: FDA-Public Use
  Company Number: US-BRISTOL-MYERS SQUIBB COMPANY-12522264

PATIENT
  Age: 37 Year
  Sex: Male

DRUGS (2)
  1. ABILIFY [Suspect]
     Route: 048
  2. ATIVAN [Concomitant]

REACTIONS (6)
  - DROOLING [None]
  - DYSARTHRIA [None]
  - EPISTAXIS [None]
  - GAIT DISTURBANCE [None]
  - MOUTH HAEMORRHAGE [None]
  - TREMOR [None]
